FAERS Safety Report 5671866-2 (Version None)
Quarter: 2008Q1

REPORT INFORMATION
  Report Type: 
  Country: None (occurrence: None)
  Receive Date: 20080317
  Receipt Date: 20080317
  Transmission Date: 20080703
  Serious: Yes (Other)
  Sender: FDA-Public Use
  Company Number: None

PATIENT
  Age: 25 Year
  Sex: Female
  Weight: 61.2356 kg

DRUGS (2)
  1. TAMIFLU [Suspect]
     Indication: INFLUENZA
     Dosage: 75 MG BID PO
     Route: 048
     Dates: start: 20080313, end: 20080315
  2. TUSSIONEX [Concomitant]

REACTIONS (5)
  - AGITATION [None]
  - CONFUSIONAL STATE [None]
  - DYSKINESIA [None]
  - HYPERACUSIS [None]
  - THINKING ABNORMAL [None]
